FAERS Safety Report 8179369-0 (Version None)
Quarter: 2012Q1

REPORT INFORMATION
  Report Type: 
  Country: None (occurrence: None)
  Receive Date: 20120302
  Receipt Date: 20120220
  Transmission Date: 20120608
  Serious: Yes (Hospitalization)
  Sender: FDA-Public Use
  Company Number: US-BAYER-2011-037978

PATIENT
  Age: 33 Year
  Sex: Female
  Weight: 94 kg

DRUGS (1)
  1. YAZ [Suspect]
     Indication: CONTRACEPTION
     Dosage: UNK
     Dates: start: 20070111, end: 20070504

REACTIONS (20)
  - CONVULSION [None]
  - HEADACHE [None]
  - MOBILITY DECREASED [None]
  - VISUAL IMPAIRMENT [None]
  - CEREBRAL INFARCTION [None]
  - ANXIETY [None]
  - STRESS [None]
  - SUPERIOR SAGITTAL SINUS THROMBOSIS [None]
  - FEAR OF DISEASE [None]
  - PAIN [None]
  - BALANCE DISORDER [None]
  - MEMORY IMPAIRMENT [None]
  - EMOTIONAL DISTRESS [None]
  - INJURY [None]
  - CEREBROVASCULAR ACCIDENT [None]
  - MUSCULOSKELETAL STIFFNESS [None]
  - DIZZINESS [None]
  - NAUSEA [None]
  - VOMITING [None]
  - MENTAL IMPAIRMENT [None]
